FAERS Safety Report 23024503 (Version 5)
Quarter: 2024Q2

REPORT INFORMATION
  Report Type: Spontaneous
  Country: US (occurrence: US)
  Receive Date: 20231004
  Receipt Date: 20240422
  Transmission Date: 20240716
  Serious: Yes (Hospitalization, Other)
  Sender: FDA-Public Use
  Company Number: US-ADVANZ PHARMA-202309008046

PATIENT

DRUGS (4)
  1. TRANYLCYPROMINE SULFATE [Interacting]
     Active Substance: TRANYLCYPROMINE SULFATE
     Indication: Depression
     Dosage: 30 MG, QD, (10 MG TABLETS-3 TABLETS)
     Route: 048
     Dates: start: 1985, end: 20230408
  2. TRANYLCYPROMINE SULFATE [Interacting]
     Active Substance: TRANYLCYPROMINE SULFATE
     Dosage: UNK (RESUMED POST-DISCHARGE)
     Dates: start: 20230409
  3. BACLOFEN [Interacting]
     Active Substance: BACLOFEN
     Indication: Neck pain
     Dosage: UNK, PRN, (5-10 MG, AS NEEDED)
     Route: 048
     Dates: start: 20230327, end: 20230408
  4. VALIUM [Interacting]
     Active Substance: DIAZEPAM
     Indication: Neck pain
     Dosage: 2 MG, QD, (NIGHTLY AS NEEDED)
     Dates: start: 20230407, end: 20230408

REACTIONS (8)
  - Lyme disease [Recovered/Resolved]
  - Chronic kidney disease [Recovering/Resolving]
  - Hypertension [Recovered/Resolved]
  - Headache [Recovered/Resolved]
  - Dizziness [Recovered/Resolved]
  - Aphasia [Recovered/Resolved]
  - Drug interaction [Unknown]
  - Neck pain [Unknown]

NARRATIVE: CASE EVENT DATE: 20090101
